FAERS Safety Report 12860273 (Version 1)
Quarter: 2016Q4

REPORT INFORMATION
  Report Type: Spontaneous
  Country: FR (occurrence: FR)
  Receive Date: 20161019
  Receipt Date: 20161019
  Transmission Date: 20170207
  Serious: Yes (Hospitalization)
  Sender: FDA-Public Use
  Company Number: FR-ELI_LILLY_AND_COMPANY-FR201610002124

PATIENT
  Age: 55 Year
  Sex: Male

DRUGS (5)
  1. AUBAGIO [Concomitant]
     Active Substance: TERIFLUNOMIDE
  2. INEXIUM                            /01479302/ [Concomitant]
     Active Substance: ESOMEPRAZOLE MAGNESIUM
  3. ALIMTA [Suspect]
     Active Substance: PEMETREXED DISODIUM
     Indication: LUNG ADENOCARCINOMA
     Dosage: 975 MG, UNKNOWN
     Route: 042
     Dates: start: 20160829, end: 20160829
  4. SOLUPRED                           /00016201/ [Concomitant]
     Active Substance: PREDNISOLONE
  5. DIFFU K [Concomitant]
     Active Substance: POTASSIUM CHLORIDE

REACTIONS (3)
  - Urticaria [Recovered/Resolved]
  - Localised oedema [Recovered/Resolved]
  - Rash pruritic [Recovered/Resolved]

NARRATIVE: CASE EVENT DATE: 20160831
